FAERS Safety Report 11548365 (Version 1)
Quarter: 2015Q3

REPORT INFORMATION
  Report Type: Spontaneous
  Country: US (occurrence: US)
  Receive Date: 20150924
  Receipt Date: 20150924
  Transmission Date: 20151125
  Serious: No
  Sender: FDA-Public Use
  Company Number: US-INCYTE CORPORATION-2015IN001309

PATIENT
  Age: 74 Year
  Sex: Male

DRUGS (4)
  1. HYDROXYUREA. [Concomitant]
     Active Substance: HYDROXYUREA
  2. JAKAFI [Suspect]
     Active Substance: RUXOLITINIB
     Dosage: 5 MG, BID
     Route: 048
     Dates: start: 20150130
  3. NICAPHLOGYL [Concomitant]
  4. PREDNISONE. [Concomitant]
     Active Substance: PREDNISONE

REACTIONS (3)
  - Dyspnoea [Unknown]
  - Vision blurred [Unknown]
  - Fatigue [Unknown]

NARRATIVE: CASE EVENT DATE: 20150330
